FAERS Safety Report 21478299 (Version 1)
Quarter: 2022Q4

REPORT INFORMATION
  Report Type: Spontaneous
  Country: US (occurrence: US)
  Receive Date: 20221019
  Receipt Date: 20221019
  Transmission Date: 20230112
  Serious: Yes (Other)
  Sender: FDA-Public Use
  Company Number: US-GLAXOSMITHKLINE-USCH2022GSK039037

PATIENT

DRUGS (1)
  1. IBUPROFEN [Suspect]
     Active Substance: IBUPROFEN
     Indication: Intentional product misuse
     Dosage: UNK

REACTIONS (7)
  - Toxicity to various agents [Unknown]
  - Shock [Unknown]
  - Anion gap [Unknown]
  - Metabolic acidosis [Recovering/Resolving]
  - Hypotension [Unknown]
  - Acute kidney injury [Recovering/Resolving]
  - Upper gastrointestinal haemorrhage [Recovering/Resolving]
